FAERS Safety Report 19168293 (Version 1)
Quarter: 2021Q2

REPORT INFORMATION
  Report Type: Spontaneous
  Country: CA (occurrence: CA)
  Receive Date: 20210422
  Receipt Date: 20210422
  Transmission Date: 20210717
  Serious: No
  Sender: FDA-Public Use
  Company Number: CA-NESTLEHEALTHSCIENCE-202000029

PATIENT
  Age: 56 Year
  Sex: Female

DRUGS (2)
  1. VIOKACE [Suspect]
     Active Substance: PANCRELIPASE AMYLASE\PANCRELIPASE LIPASE\PANCRELIPASE PROTEASE
     Dosage: 8 DF, QD
     Route: 048
     Dates: start: 201904, end: 201910
  2. VIOKACE [Suspect]
     Active Substance: PANCRELIPASE AMYLASE\PANCRELIPASE LIPASE\PANCRELIPASE PROTEASE
     Dosage: 8 UNK
     Route: 048
     Dates: start: 202003, end: 202005

REACTIONS (3)
  - Off label use [Unknown]
  - Product use complaint [Unknown]
  - Dyspnoea [Not Recovered/Not Resolved]
